FAERS Safety Report 4653802-0 (Version None)
Quarter: 2005Q2

REPORT INFORMATION
  Report Type: 
  Country: None (occurrence: None)
  Receive Date: 20050504
  Receipt Date: 20050421
  Transmission Date: 20051028
  Serious: Yes (Hospitalization, Other)
  Sender: FDA-Public Use
  Company Number: KII-2005-0016312

PATIENT
  Age: 29 Year
  Sex: Male

DRUGS (2)
  1. OXYCONTIN [Suspect]
     Indication: DRUG USE FOR UNKNOWN INDICATION
     Dosage: SEE TEXT, INHALATION
     Route: 055
  2. BENZODIAZEPINE DERIVATIVES ( ) [Suspect]
     Indication: DRUG USE FOR UNKNOWN INDICATION

REACTIONS (8)
  - ASPIRATION [None]
  - COMA [None]
  - DRUG ABUSER [None]
  - DRUG SCREEN POSITIVE [None]
  - LETHARGY [None]
  - OVERDOSE [None]
  - SINUS TACHYCARDIA [None]
  - VOMITING [None]
